FAERS Safety Report 8920931 (Version 1)
Quarter: 2012Q4

REPORT INFORMATION
  Report Type: 
  Country: CH (occurrence: CH)
  Receive Date: 20121121
  Receipt Date: 20121121
  Transmission Date: 20130627
  Serious: Yes (Hospitalization)
  Sender: FDA-Public Use
  Company Number: CH-GLAXOSMITHKLINE-B0845896A

PATIENT
  Sex: Male

DRUGS (8)
  1. ARIXTRA [Suspect]
     Indication: PRODUCT USED FOR UNKNOWN INDICATION
     Dosage: 5MG Per day
     Route: 058
     Dates: end: 20121011
  2. SINTROM MITIS [Suspect]
     Indication: PRODUCT USED FOR UNKNOWN INDICATION
     Dosage: 1MG Per day
     Route: 048
     Dates: end: 20121011
  3. ASPIRIN CARDIO [Suspect]
     Indication: PRODUCT USED FOR UNKNOWN INDICATION
     Dosage: 100MG Per day
     Route: 048
     Dates: end: 20121011
  4. LUMINAL [Concomitant]
     Dosage: 100MG Per day
     Route: 048
  5. CITALOPRAM [Concomitant]
     Dosage: 20MG Per day
     Route: 048
  6. SIMVASTATIN [Concomitant]
     Dosage: 20MG Per day
     Route: 048
  7. AERIUS [Concomitant]
     Dosage: 5MG Per day
     Route: 048
  8. SEROQUEL [Concomitant]
     Dosage: 25MG Per day
     Route: 048

REACTIONS (4)
  - Renal failure acute [Recovering/Resolving]
  - Muscle haemorrhage [Recovering/Resolving]
  - Ileus paralytic [Recovering/Resolving]
  - Anaemia [Recovering/Resolving]
